FAERS Safety Report 23831619 (Version 2)
Quarter: 2024Q2

REPORT INFORMATION
  Report Type: Spontaneous
  Country: US (occurrence: US)
  Receive Date: 20240508
  Receipt Date: 20240628
  Transmission Date: 20240716
  Serious: Yes (Hospitalization, Other)
  Sender: FDA-Public Use
  Company Number: US-PFIZER INC-PV202300162818

PATIENT
  Age: 65 Year
  Sex: Female
  Weight: 58.513 kg

DRUGS (2)
  1. ZIRABEV [Suspect]
     Active Substance: BEVACIZUMAB-BVZR
     Indication: Colon cancer
     Dosage: 400 MG, (PIGGYBACK ONCE, ADMIN OVER: 30 MINUTES TO 30 MINUTES)
     Route: 041
     Dates: start: 20240116, end: 20240116
  2. NYVEPRIA [Concomitant]
     Active Substance: PEGFILGRASTIM-APGF
     Indication: Colon cancer
     Dosage: 6 MG
     Route: 058

REACTIONS (4)
  - Abdominal pain [Recovering/Resolving]
  - Haematochezia [Unknown]
  - Abdominal pain upper [Unknown]
  - Off label use [Unknown]

NARRATIVE: CASE EVENT DATE: 20240116
